FAERS Safety Report 10553365 (Version 2)
Quarter: 2014Q4

REPORT INFORMATION
  Report Type: Spontaneous
  Country: GB (occurrence: GB)
  Receive Date: 20141030
  Receipt Date: 20141114
  Transmission Date: 20150529
  Serious: Yes (Life-Threatening, Hospitalization, Other)
  Sender: FDA-Public Use
  Company Number: GB-AUROBINDO-AUR-APL-2014-11251

PATIENT
  Age: 38 Year
  Sex: Male
  Weight: 72.57 kg

DRUGS (2)
  1. MIRTAZAPINE. [Suspect]
     Active Substance: MIRTAZAPINE
     Indication: DEPRESSION
     Dosage: 15 MG, UNK
     Route: 048
     Dates: start: 20130301
  2. MIRTAZAPINE. [Suspect]
     Active Substance: MIRTAZAPINE
     Dosage: 45 MG, UNK
     Route: 048
     Dates: end: 20140301

REACTIONS (5)
  - Agitation [Unknown]
  - Anxiety [Unknown]
  - Suicidal ideation [Unknown]
  - Fear [Unknown]
  - Tachyphrenia [Unknown]

NARRATIVE: CASE EVENT DATE: 20130601
